FAERS Safety Report 7647702-1 (Version None)
Quarter: 2011Q3

REPORT INFORMATION
  Report Type: 
  Country: None (occurrence: None)
  Receive Date: 20110801
  Receipt Date: 20110801
  Transmission Date: 20111222
  Serious: Yes (Life-Threatening)
  Sender: FDA-Public Use
  Company Number: None

PATIENT
  Age: 79 Year
  Sex: Female
  Weight: 65.77 kg

DRUGS (4)
  1. GLIPIZIDE [Concomitant]
  2. METFORMIN HCL [Concomitant]
  3. ACETAZOLAMIDE [Suspect]
     Indication: INTRAOCULAR PRESSURE INCREASED
     Dosage: 500 MG
     Route: 042
     Dates: start: 20110726, end: 20110726
  4. LISINOPRIL [Concomitant]

REACTIONS (2)
  - PULMONARY OEDEMA [None]
  - HYPOTENSION [None]
